FAERS Safety Report 10927612 (Version 10)
Quarter: 2019Q3

REPORT INFORMATION
  Report Type: Report from Study
  Country: CN (occurrence: CN)
  Receive Date: 20150318
  Receipt Date: 20190720
  Transmission Date: 20191004
  Serious: Yes (Death, Other)
  Sender: FDA-Public Use
  Company Number: CN-UCBSA-2015007281

PATIENT
  Age: 51 Year
  Sex: Female
  Weight: 70 kg

DRUGS (37)
  1. DOXOFYLLINE [Concomitant]
     Active Substance: DOXOFYLLINE
     Indication: PNEUMONIA
     Dosage: 0.3 G, 2X/DAY (BID)
     Dates: start: 20150322, end: 20150323
  2. AMBROXOL HYDROCHLORIDE [Concomitant]
     Active Substance: AMBROXOL HYDROCHLORIDE
     Indication: PNEUMONIA
     Dosage: 4 ML, ONCE DAILY (QD)
     Dates: start: 20150304, end: 20150304
  3. CEFMINOX SODIUM [Concomitant]
     Active Substance: CEFMINOX SODIUM
     Indication: PNEUMONIA
     Dosage: 1 G, 2X/DAY (BID)
     Dates: start: 20150304, end: 20150304
  4. BARBITAL [Concomitant]
     Active Substance: BARBITAL
     Indication: PNEUMONIA
     Dosage: 2 ML, ONCE DAILY (QD)
     Dates: start: 20150305, end: 20150305
  5. INVERT SUGAR [Concomitant]
     Active Substance: INVERT SUGAR
     Dosage: 500 ML, ONCE DAILY (QD)
     Dates: start: 20150310, end: 20150310
  6. RAMOSETRON HYDROCHLORIDE [Concomitant]
     Active Substance: RAMOSETRON HYDROCHLORIDE
     Dosage: 0.3 MG, ONCE DAILY (QD)
     Dates: start: 20150310, end: 20150316
  7. DOXOFYLLINE [Concomitant]
     Active Substance: DOXOFYLLINE
     Indication: PNEUMONIA
     Dosage: 20 ML, ONCE DAILY (QD)
     Dates: start: 20150305, end: 20150316
  8. CEFMINOX [Concomitant]
     Active Substance: CEFMINOX SODIUM
     Indication: PNEUMONIA
     Dosage: 20 ML, ONCE DAILY (QD)
     Dates: start: 20150305, end: 20150316
  9. NIMESULIDE [Concomitant]
     Active Substance: NIMESULIDE
     Indication: PNEUMONIA
     Dosage: 0.1 G, 2X/DAY (BID)
     Dates: start: 20150306, end: 20150317
  10. CELECOXIB. [Concomitant]
     Active Substance: CELECOXIB
     Dosage: 0.2 G, 2X/DAY (BID)
     Dates: start: 201409, end: 20150304
  11. AMBROXOL HYDROCHLORIDE [Concomitant]
     Active Substance: AMBROXOL HYDROCHLORIDE
     Dosage: 30 MG, 2X/DAY (BID)
     Dates: start: 20150322, end: 20150323
  12. DOXOFYLLINE [Concomitant]
     Active Substance: DOXOFYLLINE
     Indication: PNEUMONIA
     Dosage: 20 ML, ONCE DAILY (QD)
     Dates: start: 20150304, end: 20150304
  13. AZINTAMIDE [Concomitant]
     Active Substance: AZINTAMIDE
     Indication: PNEUMONIA
     Dosage: 75 MG, 3X/DAY (TID)
     Dates: start: 20150312, end: 20150317
  14. METHOTREXATE. [Concomitant]
     Active Substance: METHOTREXATE
     Indication: RHEUMATOID ARTHRITIS
     Dosage: 15 MG, WEEKLY (QW)
     Route: 048
     Dates: start: 201405, end: 20150304
  15. FOLIC ACID. [Concomitant]
     Active Substance: FOLIC ACID
     Indication: PROPHYLAXIS
     Dosage: 10 MG, WEEKLY (QW)
     Route: 048
     Dates: start: 201409, end: 20150304
  16. CEFTAZIDIME. [Concomitant]
     Active Substance: CEFTAZIDIME
     Indication: PNEUMONIA
     Dosage: 0.5 G, ONCE DAILY (QD)
     Dates: start: 20150322, end: 20150322
  17. FUROSEMIDE. [Concomitant]
     Active Substance: FUROSEMIDE
     Indication: FLUID RETENTION
     Dosage: 40 MG, ONCE DAILY (QD)
     Dates: start: 20150323, end: 20150323
  18. GLUCOSE [Concomitant]
     Active Substance: DEXTROSE
     Indication: PNEUMONIA
     Dosage: 0.3 G, 2X/DAY (BID)
     Dates: start: 20150322, end: 20150323
  19. AMBROXOL HYDROCHLORIDE [Concomitant]
     Active Substance: AMBROXOL HYDROCHLORIDE
     Dosage: 4 ML, 2X/DAY (BID)
     Dates: start: 20150305, end: 20150316
  20. TRAMADOL. [Concomitant]
     Active Substance: TRAMADOL
     Indication: LUNG DISORDER
     Dosage: 100 MG, ONCE DAILY (QD)
     Dates: start: 20150322, end: 20150322
  21. INVERT SUGAR [Concomitant]
     Active Substance: INVERT SUGAR
     Indication: PNEUMONIA
     Dosage: 500 ML, ONCE DAILY (QD)
     Dates: start: 20150309, end: 20150309
  22. ELECTROLYTE [Concomitant]
     Active Substance: UNSPECIFIED INGREDIENT
     Indication: PNEUMONIA
     Dosage: 500 MG, ONCE DAILY (QD)
     Dates: start: 20150309, end: 20150309
  23. ELECTROLYTE [Concomitant]
     Active Substance: UNSPECIFIED INGREDIENT
     Dosage: 500 MG, ONCE DAILY (QD)
     Dates: start: 20150310, end: 20150310
  24. PAPAVERIN [Concomitant]
     Active Substance: PAPAVERINE
     Indication: PNEUMONIA
     Dosage: 30 MG, ONCE DAILY (QD)
     Dates: start: 20150311, end: 20150311
  25. ASMETON [Concomitant]
     Active Substance: AMINOPHYLLINE\CHLORPHENIRAMINE MALEATE\METHOXYPHENAMINE HYDROCHLORIDE\NOSCAPINE
     Indication: PNEUMONIA
     Dosage: 25 MG, 3X/DAY (TID)
     Dates: start: 20150304, end: 20150317
  26. VITAMIN B4 [Concomitant]
     Indication: WHITE BLOOD CELL COUNT DECREASED
     Dosage: 10 MG, 3X/DAY (TID)
     Route: 048
     Dates: start: 20150215, end: 20150323
  27. FUROSEMIDE. [Concomitant]
     Active Substance: FUROSEMIDE
     Indication: PLEURAL EFFUSION
     Dosage: 20 MG, 2X/DAY (BID)
     Dates: start: 20150322, end: 20150322
  28. CEFTAZIDIME. [Concomitant]
     Active Substance: CEFTAZIDIME
     Dosage: 2 G, 2X/DAY (BID)
     Dates: start: 20150322, end: 20150323
  29. PANTOPRAZOLE SODIUM. [Concomitant]
     Active Substance: PANTOPRAZOLE SODIUM
     Dosage: 40 MG, 2X/DAY (BID)
     Dates: start: 20150307, end: 20150316
  30. ACETYLSALICYLATE LYSINE [Concomitant]
     Active Substance: ASPIRIN DL-LYSINE
     Indication: PNEUMONIA
     Dosage: 0.9 G, ONCE DAILY (QD)
     Dates: start: 20150323, end: 20150323
  31. PANTOPRAZOLE SODIUM. [Concomitant]
     Active Substance: PANTOPRAZOLE SODIUM
     Indication: PNEUMONIA
     Dosage: 40 MG, ONCE DAILY (QD)
     Dates: start: 20150306, end: 20150306
  32. RAMOSETRON HYDROCHLORIDE [Concomitant]
     Active Substance: RAMOSETRON HYDROCHLORIDE
     Indication: PNEUMONIA
     Dosage: 0.3 G, ONCE DAILY (QD)
     Dates: start: 20150309, end: 20150309
  33. FOLIC ACID. [Concomitant]
     Active Substance: FOLIC ACID
     Indication: RHEUMATOID ARTHRITIS
  34. CELECOXIB. [Concomitant]
     Active Substance: CELECOXIB
     Indication: RHEUMATOID ARTHRITIS
     Dosage: 0.2 G, 2X/DAY (BID)
     Dates: start: 201405, end: 201409
  35. CERTOLIZUMAB PEGOL VS PLACEBO [Suspect]
     Active Substance: CERTOLIZUMAB PEGOL
     Indication: RHEUMATOID ARTHRITIS
     Dosage: 400 MG, EV 2 WEEKS(QOW)
     Route: 058
     Dates: start: 20141125, end: 20141223
  36. CERTOLIZUMAB PEGOL VS PLACEBO [Suspect]
     Active Substance: CERTOLIZUMAB PEGOL
     Dosage: 200 MG, EV 2 WEEKS(QOW)
     Route: 058
     Dates: start: 20150106, end: 20150215
  37. AMINOPHENAZONE [Concomitant]
     Active Substance: AMINOPHENAZONE
     Indication: PNEUMONIA
     Dosage: 2 ML, ONCE DAILY (QD)
     Dates: start: 20150305, end: 20150305

REACTIONS (6)
  - Cardiac arrest [Fatal]
  - Pneumonia [Fatal]
  - Ascites [Fatal]
  - Respiratory failure [Fatal]
  - Pleural effusion [Fatal]
  - Pulmonary mass [Fatal]

NARRATIVE: CASE EVENT DATE: 20150304
